FAERS Safety Report 20919576 (Version 1)
Quarter: 2022Q2

REPORT INFORMATION
  Report Type: Spontaneous
  Country: US (occurrence: US)
  Receive Date: 20220606
  Receipt Date: 20220606
  Transmission Date: 20220721
  Serious: No
  Sender: FDA-Public Use
  Company Number: US-drreddys-LIT/USA/22/0150526

PATIENT
  Sex: Female

DRUGS (1)
  1. THIAMINE HYDROCHLORIDE [Suspect]
     Active Substance: THIAMINE HYDROCHLORIDE
     Indication: Product used for unknown indication
     Dosage: THIAMINE 500 MG IV PUSH OVER 1 TO 2 MIN VIA 20-GAUGE CATHETER
     Route: 042

REACTIONS (2)
  - Injection site phlebitis [Unknown]
  - Injection site extravasation [Unknown]
